FAERS Safety Report 16144477 (Version 1)
Quarter: 2019Q2

REPORT INFORMATION
  Report Type: Spontaneous
  Country: FR (occurrence: FR)
  Receive Date: 20190401
  Receipt Date: 20190401
  Transmission Date: 20190711
  Serious: Yes (Life-Threatening)
  Sender: FDA-Public Use
  Company Number: FR-SUN PHARMACEUTICAL INDUSTRIES LTD-2019RR-203284

PATIENT
  Age: 63 Year
  Sex: Female
  Weight: 68 kg

DRUGS (1)
  1. PARACETAMOL [Suspect]
     Active Substance: ACETAMINOPHEN
     Indication: PRODUCT USED FOR UNKNOWN INDICATION
     Dosage: 52 GRAM, IN TOTAL
     Route: 048
     Dates: start: 20190127, end: 20190127

REACTIONS (5)
  - Lactic acidosis [Recovered/Resolved]
  - Coma [Recovered/Resolved]
  - Hepatocellular injury [Recovered/Resolved]
  - Intentional overdose [Recovered/Resolved]
  - Hypothermia [Recovered/Resolved]

NARRATIVE: CASE EVENT DATE: 20190127
